FAERS Safety Report 17570863 (Version 1)
Quarter: 2020Q1

REPORT INFORMATION
  Report Type: Spontaneous
  Country: DE (occurrence: DE)
  Receive Date: 20200323
  Receipt Date: 20200323
  Transmission Date: 20200409
  Serious: Yes (Other)
  Sender: FDA-Public Use
  Company Number: DE-ASTELLAS-2020US010025

PATIENT
  Sex: Male

DRUGS (1)
  1. PROGRAF [Suspect]
     Active Substance: TACROLIMUS
     Indication: RENAL TRANSPLANT
     Dosage: 1.5 MG, TWICE DAILY (MORNING AND EVENING)
     Route: 048
     Dates: start: 2017

REACTIONS (3)
  - Secondary immunodeficiency [Unknown]
  - Weight increased [Unknown]
  - Fall [Unknown]
